FAERS Safety Report 18070451 (Version 5)
Quarter: 2020Q4

REPORT INFORMATION
  Report Type: Other
  Country: GR (occurrence: GR)
  Receive Date: 20200727
  Receipt Date: 20201008
  Transmission Date: 20210113
  Serious: Yes (Death, Other)
  Sender: FDA-Public Use
  Company Number: GR-ROCHE-2648552

PATIENT
  Age: 50 Year
  Sex: Female

DRUGS (4)
  1. RITUXIMAB. [Suspect]
     Active Substance: RITUXIMAB
     Indication: DEMYELINATION
     Dosage: UNK
     Route: 065
  2. URSODEOXYCHOLIC ACID [Concomitant]
     Active Substance: URSODIOL
     Indication: HEMIPARESIS
     Dosage: UNK
     Route: 065
  3. RITUXIMAB. [Suspect]
     Active Substance: RITUXIMAB
     Indication: TUMEFACTIVE MULTIPLE SCLEROSIS
  4. URSODEOXYCHOLIC ACID [Concomitant]
     Active Substance: URSODIOL
     Indication: HEPATIC ENZYME DECREASED

REACTIONS (7)
  - Off label use [Unknown]
  - Drug ineffective [Fatal]
  - Condition aggravated [Unknown]
  - Demyelination [Unknown]
  - Drug resistance [Unknown]
  - Product use in unapproved indication [Unknown]
  - Pneumonia [Fatal]
